FAERS Safety Report 4329965-3 (Version None)
Quarter: 2004Q2

REPORT INFORMATION
  Report Type: 
  Country: None (occurrence: None)
  Receive Date: 20040401
  Receipt Date: 20011025
  Transmission Date: 20050107
  Serious: Yes (Hospitalization, Other)
  Sender: FDA-Public Use
  Company Number: US-MERCK-01104486

PATIENT
  Age: 77 Year
  Sex: Female
  Weight: 80 kg

DRUGS (6)
  1. TYLENOL (CAPLET) [Concomitant]
     Route: 065
  2. ASPIRIN [Concomitant]
     Route: 065
  3. VIOXX [Suspect]
     Indication: ARTHRITIS
     Route: 048
     Dates: start: 19990929, end: 19991201
  4. VIOXX [Suspect]
     Route: 048
     Dates: start: 20010305, end: 20010101
  5. VIOXX [Suspect]
     Indication: OSTEOARTHRITIS
     Route: 048
     Dates: start: 19990929, end: 19991201
  6. VIOXX [Suspect]
     Route: 048
     Dates: start: 20010305, end: 20010101

REACTIONS (56)
  - ACTINIC KERATOSIS [None]
  - ACTIVITIES OF DAILY LIVING IMPAIRED [None]
  - ARTHRALGIA [None]
  - ARTHROPATHY [None]
  - ASTHENIA [None]
  - BLOOD CHOLESTEROL INCREASED [None]
  - BLOOD PRESSURE INCREASED [None]
  - BODY TEMPERATURE INCREASED [None]
  - BUNION [None]
  - CARDIAC FAILURE CONGESTIVE [None]
  - CARDIOVASCULAR DISORDER [None]
  - CHEST DISCOMFORT [None]
  - CONSTIPATION [None]
  - DIZZINESS [None]
  - DRUG INTOLERANCE [None]
  - ELECTROCARDIOGRAM T WAVE INVERSION [None]
  - FALL [None]
  - GAIT DISTURBANCE [None]
  - GASTRIC DISORDER [None]
  - GLOBULINS INCREASED [None]
  - HEADACHE [None]
  - HYPERTENSIVE HEART DISEASE [None]
  - INTERVERTEBRAL DISC DISORDER [None]
  - JOINT SPRAIN [None]
  - JOINT SWELLING [None]
  - LACERATION [None]
  - LIMB DISCOMFORT [None]
  - LOCALISED OSTEOARTHRITIS [None]
  - LUMBAR SPINAL STENOSIS [None]
  - MITRAL VALVE INCOMPETENCE [None]
  - MOBILITY DECREASED [None]
  - MUSCLE CRAMP [None]
  - MYALGIA [None]
  - MYOCARDIAL INFARCTION [None]
  - MYOCARDIAL ISCHAEMIA [None]
  - NASAL CONGESTION [None]
  - NAUSEA [None]
  - NOCTURIA [None]
  - OEDEMA PERIPHERAL [None]
  - ONYCHOMYCOSIS [None]
  - PERICARDITIS [None]
  - POSTNASAL DRIP [None]
  - PULMONARY GRANULOMA [None]
  - RADICULOPATHY [None]
  - RENAL FAILURE [None]
  - RESPIRATORY RATE INCREASED [None]
  - ROTATOR CUFF SYNDROME [None]
  - SCOLIOSIS [None]
  - SEBORRHOEIC KERATOSIS [None]
  - SINUSITIS [None]
  - SKIN LESION [None]
  - SPONDYLOSIS [None]
  - TRICUSPID VALVE INCOMPETENCE [None]
  - VENTRICULAR EXTRASYSTOLES [None]
  - VENTRICULAR HYPERTROPHY [None]
  - WOUND INFECTION [None]
